FAERS Safety Report 25072484 (Version 2)
Quarter: 2025Q2

REPORT INFORMATION
  Report Type: Spontaneous
  Country: SG (occurrence: None)
  Receive Date: 20250313
  Receipt Date: 20250403
  Transmission Date: 20250716
  Serious: Yes (Hospitalization)
  Sender: ORION
  Company Number: SG-MLMSERVICE-20250228-PI430483-00218-2

PATIENT
  Age: 76 Year
  Sex: Female
  Weight: 58 kg

DRUGS (1)
  1. METHOTREXATE [Suspect]
     Active Substance: METHOTREXATE
     Indication: Panniculitis

REACTIONS (7)
  - Herpes simplex [Recovered/Resolved]
  - Pancytopenia [Recovered/Resolved]
  - Mouth ulceration [Recovered/Resolved]
  - Pain of skin [Recovered/Resolved]
  - Bicytopenia [Recovered/Resolved]
  - Toxicity to various agents [Recovered/Resolved]
  - Product use in unapproved indication [Unknown]
